FAERS Safety Report 17012090 (Version 2)
Quarter: 2019Q4

REPORT INFORMATION
  Report Type: Spontaneous
  Country: US (occurrence: US)
  Receive Date: 20191108
  Receipt Date: 20191108
  Transmission Date: 20200122
  Serious: Yes (Hospitalization)
  Sender: FDA-Public Use
  Company Number: US-CELGENEUS-USA-20191101217

PATIENT
  Age: 71 Year
  Sex: Female
  Weight: 62.65 kg

DRUGS (1)
  1. POMALYST [Suspect]
     Active Substance: POMALIDOMIDE
     Indication: PLASMA CELL MYELOMA
     Dosage: 3 MILLIGRAM
     Route: 048
     Dates: start: 20180615

REACTIONS (4)
  - Cerebral haemorrhage [Unknown]
  - Head injury [Unknown]
  - Cardiac disorder [Unknown]
  - Fall [Unknown]

NARRATIVE: CASE EVENT DATE: 20191102
